FAERS Safety Report 5754474-4 (Version None)
Quarter: 2008Q2

REPORT INFORMATION
  Report Type: 
  Country: None (occurrence: None)
  Receive Date: 20080530
  Receipt Date: 20080502
  Transmission Date: 20081010
  Serious: No
  Sender: FDA-Public Use
  Company Number: US-BOEHRINGER INGELHEIM GMBH, GERMANY-2008-BP-07001BP

PATIENT
  Age: 71 Year
  Sex: Female

DRUGS (8)
  1. MOBIC [Suspect]
     Indication: BACK PAIN
     Route: 048
     Dates: end: 20070401
  2. SYNTHROID [Concomitant]
     Indication: THYROIDECTOMY
  3. NEXIUM [Concomitant]
     Indication: OESOPHAGEAL DISORDER
  4. REQUIP [Concomitant]
     Indication: SLEEP DISORDER
  5. PROVIGIL [Concomitant]
  6. ACTONEL [Concomitant]
     Indication: OSTEOPENIA
  7. IMITREX [Concomitant]
     Indication: MIGRAINE
  8. COLACE [Concomitant]
     Indication: CONSTIPATION

REACTIONS (1)
  - DRUG INEFFECTIVE [None]
